FAERS Safety Report 9898948 (Version 1)
Quarter: 2014Q1

REPORT INFORMATION
  Report Type: Spontaneous
  Country: CA (occurrence: CA)
  Receive Date: 20140214
  Receipt Date: 20140214
  Transmission Date: 20141002
  Serious: Yes (Hospitalization, Other)
  Sender: FDA-Public Use
  Company Number: CA-TEVA-462593USA

PATIENT
  Age: 73 Year
  Sex: Female

DRUGS (6)
  1. HYDROCHLOROTHIAZIDE [Suspect]
     Dosage: 12.5 MILLIGRAM DAILY;
     Route: 048
  2. LITHIUM [Suspect]
     Dosage: 150 MILLIGRAM DAILY;
     Route: 048
  3. LITHIUM [Suspect]
     Dosage: 450 MILLIGRAM DAILY;
     Route: 048
  4. ATORVASTATIN CALCIUM [Concomitant]
     Route: 048
  5. LEVOTHYROXINE [Concomitant]
  6. LORAZEPAM [Concomitant]

REACTIONS (10)
  - Agitation [Recovered/Resolved]
  - Anxiety [Recovered/Resolved]
  - Decreased appetite [Not Recovered/Not Resolved]
  - Disorientation [Recovered/Resolved]
  - Drug level increased [Recovered/Resolved]
  - Fear [Recovered/Resolved]
  - Gait disturbance [Recovered/Resolved]
  - Hallucination, auditory [Recovered/Resolved]
  - Diarrhoea [Recovered/Resolved]
  - Vomiting [Recovered/Resolved]
